FAERS Safety Report 7964416-9 (Version None)
Quarter: 2011Q4

REPORT INFORMATION
  Report Type: 
  Country: None (occurrence: None)
  Receive Date: 20111205
  Receipt Date: 20111117
  Transmission Date: 20120403
  Serious: Yes (Other)
  Sender: FDA-Public Use
  Company Number: 20110809

PATIENT
  Age: 42 Year
  Sex: Male

DRUGS (3)
  1. PROPOFOL [Suspect]
     Indication: ANAESTHESIA PROCEDURE
     Dosage: TOTAL DOSE 61.9 MCG
  2. LIDOCAINE HYDROCHLORIDE [Suspect]
     Indication: ANAESTHESIA PROCEDURE
     Dosage: 40 MG X 1 PER ONCE
  3. FENTANYL [Suspect]
     Indication: ANAESTHESIA PROCEDURE

REACTIONS (1)
  - ELECTROCARDIOGRAM ST SEGMENT ELEVATION [None]
